FAERS Safety Report 7786060-9 (Version None)
Quarter: 2011Q3

REPORT INFORMATION
  Report Type: 
  Country: None (occurrence: None)
  Receive Date: 20110929
  Receipt Date: 20110916
  Transmission Date: 20111222
  Serious: Yes (Death)
  Sender: FDA-Public Use
  Company Number: US-ELI_LILLY_AND_COMPANY-US201004008411

PATIENT
  Sex: Female
  Weight: 39.093 kg

DRUGS (2)
  1. FORTEO [Suspect]
     Dosage: 20 UG, QD
     Route: 058
  2. FORTEO [Suspect]
     Indication: OSTEOPOROSIS
     Dosage: 20 UG, DAILY (1/D)
     Route: 058
     Dates: start: 20100218

REACTIONS (8)
  - ANGIOPATHY [None]
  - LUNG DISORDER [None]
  - SCLERODERMA [None]
  - FATIGUE [None]
  - PAIN [None]
  - CARDIAC DISORDER [None]
  - MALAISE [None]
  - INJECTION SITE PAIN [None]
